FAERS Safety Report 25855297 (Version 1)
Quarter: 2025Q3

REPORT INFORMATION
  Report Type: Other
  Country: US (occurrence: US)
  Receive Date: 20250927
  Receipt Date: 20250927
  Transmission Date: 20251021
  Serious: Yes (Hospitalization)
  Sender: ANI
  Company Number: US-ANIPHARMA-030705

PATIENT
  Age: 41 Year
  Sex: Male

DRUGS (3)
  1. RISPERIDONE [Suspect]
     Active Substance: RISPERIDONE
     Indication: Psychotic symptom
  2. LORAZEPAM [Suspect]
     Active Substance: LORAZEPAM
     Indication: Catatonia
  3. CLOZAPINE [Concomitant]
     Active Substance: CLOZAPINE
     Indication: Psychotic symptom

REACTIONS (5)
  - Therapeutic response unexpected [Unknown]
  - Memory impairment [Unknown]
  - Disorganised speech [Unknown]
  - Abnormal behaviour [Unknown]
  - Drug ineffective [Unknown]
